FAERS Safety Report 5444494-1 (Version None)
Quarter: 2007Q3

REPORT INFORMATION
  Report Type: 
  Country: None (occurrence: None)
  Receive Date: 20070830
  Receipt Date: 20070823
  Transmission Date: 20080115
  Serious: Yes (Other)
  Sender: FDA-Public Use
  Company Number: 2007327489

PATIENT
  Age: 29 Year
  Sex: Female
  Weight: 51.7101 kg

DRUGS (2)
  1. LISTERINE ESSENTIAL CARE TARTAR CONTROL TOOTHPASTE (MENTHOL, METHYL SA [Suspect]
     Indication: DENTAL DISORDER PROPHYLAXIS
     Dosage: REGULAR AMOUNT TWICE DAILY (2 IN 1 D), ORAL
     Route: 048
     Dates: start: 20070720, end: 20070722
  2. ORTHO-CEPT [Concomitant]

REACTIONS (3)
  - AGEUSIA [None]
  - GLOSSITIS [None]
  - LIP SWELLING [None]
